FAERS Safety Report 14814146 (Version 1)
Quarter: 2018Q2

REPORT INFORMATION
  Report Type: Spontaneous
  Country: US (occurrence: US)
  Receive Date: 20180417
  Receipt Date: 20180417
  Transmission Date: 20180711
  Serious: Yes (Hospitalization)
  Sender: FDA-Public Use
  Company Number: None

PATIENT
  Age: 85 Year
  Sex: Female

DRUGS (16)
  1. LEVOTHYROXINE. [Concomitant]
     Active Substance: LEVOTHYROXINE
  2. MULTI VIT [Concomitant]
  3. SIMVASTATIN. [Concomitant]
     Active Substance: SIMVASTATIN
  4. CALCIUM [Concomitant]
     Active Substance: CALCIUM
  5. ASPIRIN. [Concomitant]
     Active Substance: ASPIRIN
  6. ALLERGY TABS [Concomitant]
  7. OXYBUTYNIN. [Concomitant]
     Active Substance: OXYBUTYNIN CHLORIDE
  8. PREDNISONE. [Concomitant]
     Active Substance: PREDNISONE
  9. ESBRIET [Suspect]
     Active Substance: PIRFENIDONE
     Indication: IDIOPATHIC PULMONARY FIBROSIS
     Route: 048
     Dates: start: 20180125
  10. VITAMIN D [Concomitant]
     Active Substance: CHOLECALCIFEROL
  11. RELCAST [Concomitant]
  12. METAMUCIL [Concomitant]
     Active Substance: PLANTAGO SEED
  13. DRY EYE RELIEF [Concomitant]
     Active Substance: GLYCERIN\HYPROMELLOSE 2208 (100 MPA.S)\POLYETHYLENE GLYCOL 400
  14. PROBIOTIC [Concomitant]
     Active Substance: PROBIOTICS NOS
  15. NASAL SALINE [Concomitant]
     Active Substance: SODIUM CHLORIDE
  16. STOOL SOFTNER [Concomitant]

REACTIONS (2)
  - Fall [None]
  - Fractured coccyx [None]
